FAERS Safety Report 22132389 (Version 1)
Quarter: 2023Q1

REPORT INFORMATION
  Report Type: Spontaneous
  Country: BE (occurrence: BE)
  Receive Date: 20230323
  Receipt Date: 20230323
  Transmission Date: 20230418
  Serious: Yes (Death, Other)
  Sender: FDA-Public Use
  Company Number: BE-PFIZER INC-PV202300055213

PATIENT
  Sex: Male

DRUGS (1)
  1. VYNDAQEL [Suspect]
     Active Substance: TAFAMIDIS MEGLUMINE
     Indication: Cardiac amyloidosis
     Dosage: UNK

REACTIONS (3)
  - Sudden death [Fatal]
  - Cardiac failure chronic [Unknown]
  - Off label use [Unknown]

NARRATIVE: CASE EVENT DATE: 20230301
